FAERS Safety Report 5739774-6 (Version None)
Quarter: 2008Q2

REPORT INFORMATION
  Report Type: 
  Country: None (occurrence: None)
  Receive Date: 20080512
  Receipt Date: 20080512
  Transmission Date: 20081010
  Serious: Yes (Hospitalization)
  Sender: FDA-Public Use
  Company Number: None

PATIENT
  Age: 41 Year
  Sex: Male

DRUGS (4)
  1. BACTRIM DS [Suspect]
     Indication: HAEMATURIA
     Dosage: 1 TABLET BID PO
     Route: 048
  2. BACTRIM DS [Suspect]
     Indication: URINARY TRACT INFECTION
     Dosage: 1 TABLET BID PO
     Route: 048
  3. TRIAMTERENE AND HYDROCHLOROTHIAZIDE [Suspect]
  4. CONTRAST [Suspect]

REACTIONS (4)
  - HAEMODIALYSIS [None]
  - NEPHRITIS INTERSTITIAL [None]
  - NO THERAPEUTIC RESPONSE [None]
  - RENAL FAILURE ACUTE [None]
